FAERS Safety Report 13033701 (Version 1)
Quarter: 2016Q4

REPORT INFORMATION
  Report Type: Spontaneous
  Country: DE (occurrence: DE)
  Receive Date: 20161216
  Receipt Date: 20161216
  Transmission Date: 20170207
  Serious: Yes (Other)
  Sender: FDA-Public Use
  Company Number: DE-ACCORD-046427

PATIENT
  Age: 79 Year
  Sex: Female
  Weight: 72 kg

DRUGS (11)
  1. LEVETIRACETAM. [Suspect]
     Active Substance: LEVETIRACETAM
     Indication: EPILEPSY
     Dosage: DAILY DOSE: 500 MG
     Route: 048
     Dates: start: 20160816, end: 20161111
  2. TORASEMIDE [Concomitant]
     Active Substance: TORSEMIDE
     Dosage: DAILY DOSE: 100 MG MILLGRAM(S) EVERY DAYS
  3. CANDESARTAN [Concomitant]
     Active Substance: CANDESARTAN
     Dosage: DAILY DOSE: 16 MG MILLGRAM(S) EVERY DAYS
  4. PANTOPRAZOLE [Concomitant]
     Active Substance: PANTOPRAZOLE SODIUM
     Dosage: DAILY DOSE: 40 MG MILLGRAM(S) EVERY DAYS
  5. NOVAMINSULFON [Concomitant]
     Active Substance: METAMIZOLE
  6. BISOPROLOL [Concomitant]
     Active Substance: BISOPROLOL
     Dosage: DAILY DOSE: 2.5 MG MILLGRAM(S) EVERY DAYS
  7. ALLOPURINOL. [Concomitant]
     Active Substance: ALLOPURINOL
     Dosage: DAILY DOSE: 100 MG MILLGRAM(S) EVERY DAYS
  8. AMIODARONE [Concomitant]
     Active Substance: AMIODARONE
     Dosage: DAILY DOSE: 100 MG MILLGRAM(S) EVERY DAYS
  9. EUTHYROX [Concomitant]
     Active Substance: LEVOTHYROXINE SODIUM
  10. SPIRO [Concomitant]
     Dosage: DAILY DOSE: 1 DF DOSAGE FORM EVERY DAYS
  11. MARCUMAR [Concomitant]
     Active Substance: PHENPROCOUMON

REACTIONS (2)
  - Renal failure [Not Recovered/Not Resolved]
  - Nausea [Not Recovered/Not Resolved]

NARRATIVE: CASE EVENT DATE: 20161114
